FAERS Safety Report 19021155 (Version 7)
Quarter: 2024Q2

REPORT INFORMATION
  Report Type: Spontaneous
  Country: AT (occurrence: AT)
  Receive Date: 20210317
  Receipt Date: 20240429
  Transmission Date: 20240715
  Serious: Yes (Hospitalization, Other)
  Sender: FDA-Public Use
  Company Number: NVSC2021AT052051

PATIENT
  Age: 54 Year
  Sex: Female
  Weight: 98.8 kg

DRUGS (90)
  1. CARBOPLATIN [Suspect]
     Active Substance: CARBOPLATIN
     Indication: Small cell lung cancer extensive stage
     Dosage: 853.8 MG (05 JAN 2021)
     Route: 065
  2. CARBOPLATIN [Suspect]
     Active Substance: CARBOPLATIN
     Dosage: UNK
     Route: 065
     Dates: start: 20211210, end: 20211210
  3. ETOPOSIDE [Suspect]
     Active Substance: ETOPOSIDE
     Indication: Small cell lung cancer extensive stage
     Dosage: 212 MG
     Route: 042
     Dates: start: 20201211
  4. ETOPOSIDE [Suspect]
     Active Substance: ETOPOSIDE
     Dosage: 212 MG
     Route: 042
     Dates: start: 20210105
  5. ETOPOSIDE [Suspect]
     Active Substance: ETOPOSIDE
     Dosage: UNK
     Route: 065
     Dates: start: 20211210
  6. ATEZOLIZUMAB [Suspect]
     Active Substance: ATEZOLIZUMAB
     Indication: Small cell lung cancer extensive stage
     Dosage: 1200 MG
     Route: 042
     Dates: start: 20201211
  7. ATEZOLIZUMAB [Suspect]
     Active Substance: ATEZOLIZUMAB
     Dosage: 1200 MG, QW
     Route: 042
     Dates: start: 20210104
  8. ATEZOLIZUMAB [Suspect]
     Active Substance: ATEZOLIZUMAB
     Dosage: 1200 MG, Q3W (START AND END DATE OF MOST RECENT DOSE OF STUDY DRUG PRIOR TO AE 26 JAN 2021)
     Route: 042
     Dates: start: 20210105
  9. ATEZOLIZUMAB [Suspect]
     Active Substance: ATEZOLIZUMAB
     Dosage: 1200 MG, QW
     Route: 042
     Dates: start: 20210126
  10. ATEZOLIZUMAB [Suspect]
     Active Substance: ATEZOLIZUMAB
     Dosage: 1200 MG
     Route: 065
  11. JANUMET [Concomitant]
     Active Substance: METFORMIN HYDROCHLORIDE\SITAGLIPTIN PHOSPHATE
     Indication: Product used for unknown indication
     Dosage: UNK, 0.5 DAY
     Route: 065
     Dates: start: 201706
  12. JANUMET [Concomitant]
     Active Substance: METFORMIN HYDROCHLORIDE\SITAGLIPTIN PHOSPHATE
     Dosage: UNK
     Route: 065
     Dates: start: 201706
  13. AMOXICILLIN\CLAVULANATE POTASSIUM [Concomitant]
     Active Substance: AMOXICILLIN\CLAVULANATE POTASSIUM
     Indication: Product used for unknown indication
     Dosage: UNK
     Route: 065
  14. LANSOBENE [Concomitant]
     Indication: Product used for unknown indication
     Dosage: UNK, QD
     Route: 065
     Dates: start: 200509
  15. TEGRETOL [Concomitant]
     Active Substance: CARBAMAZEPINE
     Indication: Product used for unknown indication
     Dosage: UNK, 0.5 DAY
     Route: 065
     Dates: start: 202011
  16. TEGRETOL [Concomitant]
     Active Substance: CARBAMAZEPINE
     Dosage: UNK
     Route: 065
     Dates: start: 202011
  17. SPIRIVA [Concomitant]
     Active Substance: TIOTROPIUM BROMIDE MONOHYDRATE
     Indication: Product used for unknown indication
     Dosage: UNK, QD
     Route: 065
     Dates: start: 20201203
  18. GABAPENTIN [Concomitant]
     Active Substance: GABAPENTIN
     Indication: Product used for unknown indication
     Dosage: UNK, 0.5 DAY
     Route: 065
     Dates: start: 201809
  19. GABAPENTIN [Concomitant]
     Active Substance: GABAPENTIN
     Dosage: UNK
     Route: 065
     Dates: start: 201809
  20. EDOXABAN TOSYLATE [Concomitant]
     Active Substance: EDOXABAN TOSYLATE
     Indication: Product used for unknown indication
     Dosage: UNK, QD
     Route: 065
     Dates: start: 202007, end: 20210126
  21. EDOXABAN TOSYLATE [Concomitant]
     Active Substance: EDOXABAN TOSYLATE
     Dosage: UNK, QD
     Route: 065
     Dates: start: 20210129
  22. EDOXABAN TOSYLATE [Concomitant]
     Active Substance: EDOXABAN TOSYLATE
     Dosage: QD
     Route: 065
     Dates: start: 20210129
  23. EDOXABAN TOSYLATE [Concomitant]
     Active Substance: EDOXABAN TOSYLATE
     Dosage: QD
     Route: 065
     Dates: start: 202007, end: 20210126
  24. CARVEDILOL [Concomitant]
     Active Substance: CARVEDILOL
     Indication: Product used for unknown indication
     Dosage: UNK, QD
     Route: 065
     Dates: start: 200905
  25. CARVEDILOL [Concomitant]
     Active Substance: CARVEDILOL
     Dosage: QD
     Route: 065
     Dates: start: 200905
  26. ARANESP [Concomitant]
     Active Substance: DARBEPOETIN ALFA
     Indication: Prophylaxis
     Dosage: UNK, QD
     Route: 065
     Dates: start: 20210215, end: 20210215
  27. ARANESP [Concomitant]
     Active Substance: DARBEPOETIN ALFA
     Dosage: UNK, QD
     Route: 065
     Dates: start: 20210319, end: 20210319
  28. ARANESP [Concomitant]
     Active Substance: DARBEPOETIN ALFA
     Dosage: QD
     Route: 065
     Dates: start: 20210215, end: 20210215
  29. ARANESP [Concomitant]
     Active Substance: DARBEPOETIN ALFA
     Dosage: QD
     Route: 065
     Dates: start: 20210319, end: 20210319
  30. AMLODIPINE [Concomitant]
     Active Substance: AMLODIPINE BESYLATE
     Indication: Product used for unknown indication
     Dosage: UNK, QD
     Route: 065
     Dates: start: 200911
  31. AMLODIPINE [Concomitant]
     Active Substance: AMLODIPINE BESYLATE
     Dosage: QD
     Route: 065
     Dates: start: 200911
  32. DEXAMETHASONE [Concomitant]
     Active Substance: DEXAMETHASONE
     Indication: Product used for unknown indication
     Dosage: UNK, QD
     Route: 065
     Dates: start: 20210105, end: 20210107
  33. DEXAMETHASONE [Concomitant]
     Active Substance: DEXAMETHASONE
     Dosage: UNK
     Route: 065
     Dates: start: 20210126, end: 20210128
  34. DEXAMETHASONE [Concomitant]
     Active Substance: DEXAMETHASONE
     Dosage: UNK, 0.5 DAY
     Route: 065
     Dates: start: 20210218, end: 20210220
  35. DEXAMETHASONE [Concomitant]
     Active Substance: DEXAMETHASONE
     Dosage: UNK, QD
     Route: 065
     Dates: start: 20210221, end: 20210223
  36. DEXAMETHASONE [Concomitant]
     Active Substance: DEXAMETHASONE
     Dosage: UNK
     Route: 065
     Dates: start: 20210224, end: 20210226
  37. DEXAMETHASONE [Concomitant]
     Active Substance: DEXAMETHASONE
     Dosage: UNK, QD
     Route: 065
     Dates: start: 20210317, end: 20210319
  38. DEXAMETHASONE [Concomitant]
     Active Substance: DEXAMETHASONE
     Dosage: UNK
     Route: 065
     Dates: start: 20210224, end: 20210226
  39. DEXAMETHASONE [Concomitant]
     Active Substance: DEXAMETHASONE
     Dosage: QD
     Route: 065
     Dates: start: 20210317, end: 20210319
  40. DEXAMETHASONE [Concomitant]
     Active Substance: DEXAMETHASONE
     Dosage: QD
     Route: 065
     Dates: start: 20210221, end: 20210223
  41. DEXAMETHASONE [Concomitant]
     Active Substance: DEXAMETHASONE
     Dosage: UNK
     Route: 065
     Dates: start: 20210218, end: 20210220
  42. DEXAMETHASONE [Concomitant]
     Active Substance: DEXAMETHASONE
     Dosage: QD
     Route: 065
     Dates: start: 20210105, end: 20210107
  43. DEXAMETHASONE [Concomitant]
     Active Substance: DEXAMETHASONE
     Dosage: UNK
     Route: 065
     Dates: start: 20210126, end: 20210128
  44. NOVALGIN [Concomitant]
     Indication: Product used for unknown indication
     Dosage: UNK
     Route: 065
     Dates: start: 202012
  45. ONDANSETRON [Concomitant]
     Active Substance: ONDANSETRON
     Indication: Product used for unknown indication
     Dosage: UNK, QD
     Route: 065
     Dates: start: 20210105, end: 20210107
  46. ONDANSETRON [Concomitant]
     Active Substance: ONDANSETRON
     Dosage: UNK, 0.5 DAY
     Route: 065
     Dates: start: 20210108, end: 20210112
  47. ONDANSETRON [Concomitant]
     Active Substance: ONDANSETRON
     Dosage: UNK
     Route: 065
     Dates: start: 20210126, end: 20210128
  48. ONDANSETRON [Concomitant]
     Active Substance: ONDANSETRON
     Dosage: UNK
     Route: 065
     Dates: start: 20210129, end: 20210202
  49. ONDANSETRON [Concomitant]
     Active Substance: ONDANSETRON
     Dosage: UNK
     Route: 065
     Dates: start: 20210224, end: 20210226
  50. ONDANSETRON [Concomitant]
     Active Substance: ONDANSETRON
     Dosage: UNK, QD
     Route: 065
     Dates: start: 20210227, end: 20210303
  51. ONDANSETRON [Concomitant]
     Active Substance: ONDANSETRON
     Dosage: UNK, QD
     Route: 065
     Dates: start: 20210317, end: 20210324
  52. ONDANSETRON [Concomitant]
     Active Substance: ONDANSETRON
     Dosage: 16 MG, QD
     Route: 065
     Dates: start: 20210320
  53. ONDANSETRON [Concomitant]
     Active Substance: ONDANSETRON
     Dosage: UNK
     Route: 065
     Dates: start: 20210326
  54. ONDANSETRON [Concomitant]
     Active Substance: ONDANSETRON
     Dosage: UNK
     Route: 065
     Dates: start: 20210326
  55. ONDANSETRON [Concomitant]
     Active Substance: ONDANSETRON
     Dosage: UNK
     Route: 065
     Dates: start: 20210126, end: 20210128
  56. ONDANSETRON [Concomitant]
     Active Substance: ONDANSETRON
     Dosage: UNK
     Route: 065
     Dates: start: 20210108, end: 20210112
  57. ONDANSETRON [Concomitant]
     Active Substance: ONDANSETRON
     Dosage: 16.000MG QD
     Route: 065
     Dates: start: 20210320
  58. ONDANSETRON [Concomitant]
     Active Substance: ONDANSETRON
     Dosage: UNK
     Route: 065
     Dates: start: 20210129, end: 20210202
  59. ONDANSETRON [Concomitant]
     Active Substance: ONDANSETRON
     Dosage: QD
     Route: 065
     Dates: start: 20210317, end: 20210324
  60. ONDANSETRON [Concomitant]
     Active Substance: ONDANSETRON
     Dosage: QD
     Route: 065
     Dates: start: 20210317, end: 20210324
  61. ONDANSETRON [Concomitant]
     Active Substance: ONDANSETRON
     Dosage: QD
     Route: 065
     Dates: start: 20210227, end: 20210303
  62. ONDANSETRON [Concomitant]
     Active Substance: ONDANSETRON
     Dosage: UNK
     Route: 065
     Dates: start: 20210326
  63. ONDANSETRON [Concomitant]
     Active Substance: ONDANSETRON
     Dosage: QD
     Route: 065
     Dates: start: 20210105, end: 20210107
  64. ONDANSETRON [Concomitant]
     Active Substance: ONDANSETRON
     Dosage: UNK
     Route: 065
     Dates: start: 20210224, end: 20210226
  65. EXCIPIAL [Concomitant]
     Indication: Product used for unknown indication
     Dosage: UNK
     Route: 065
  66. EXCIPIAL [Concomitant]
     Dosage: UNK
     Route: 065
  67. XGEVA [Concomitant]
     Active Substance: DENOSUMAB
     Indication: Product used for unknown indication
     Dosage: UNK, QD
     Route: 065
     Dates: start: 20210226, end: 20210226
  68. XGEVA [Concomitant]
     Active Substance: DENOSUMAB
     Dosage: UNK, QD
     Route: 065
     Dates: start: 20210319, end: 20210319
  69. XGEVA [Concomitant]
     Active Substance: DENOSUMAB
     Dosage: QD
     Route: 065
     Dates: start: 20210226, end: 20210226
  70. XGEVA [Concomitant]
     Active Substance: DENOSUMAB
     Dosage: QD
     Route: 065
     Dates: start: 20210319, end: 20210319
  71. NEULASTA [Concomitant]
     Active Substance: PEGFILGRASTIM
     Indication: Product used for unknown indication
     Dosage: UNK, QD
     Route: 065
     Dates: start: 20210227, end: 20210227
  72. NEULASTA [Concomitant]
     Active Substance: PEGFILGRASTIM
     Dosage: UNK, QD
     Route: 065
     Dates: start: 20210320, end: 20210320
  73. NEULASTA [Concomitant]
     Active Substance: PEGFILGRASTIM
     Dosage: QD
     Route: 065
     Dates: start: 20210320, end: 20210320
  74. NEULASTA [Concomitant]
     Active Substance: PEGFILGRASTIM
     Dosage: QD
     Route: 065
     Dates: start: 20210227, end: 20210227
  75. POLYETHYLENE GLYCOL 3350\POTASSIUM CHLORIDE\SODIUM BICARBONATE\SODIUM [Concomitant]
     Active Substance: POLYETHYLENE GLYCOL 3350\POTASSIUM CHLORIDE\SODIUM BICARBONATE\SODIUM CHLORIDE
     Indication: Product used for unknown indication
     Dosage: UNK, QD
     Route: 065
     Dates: start: 20210319
  76. POLYETHYLENE GLYCOL 3350\POTASSIUM CHLORIDE\SODIUM BICARBONATE\SODIUM [Concomitant]
     Active Substance: POLYETHYLENE GLYCOL 3350\POTASSIUM CHLORIDE\SODIUM BICARBONATE\SODIUM CHLORIDE
     Dosage: QD
     Route: 065
     Dates: start: 20210319
  77. HYDROMORPHONE HYDROCHLORIDE [Concomitant]
     Active Substance: HYDROMORPHONE HYDROCHLORIDE
     Indication: Product used for unknown indication
     Dosage: RET. 2 MG (0.5 DAY)
     Route: 065
     Dates: start: 20210317
  78. HYDROMORPHONE HYDROCHLORIDE [Concomitant]
     Active Substance: HYDROMORPHONE HYDROCHLORIDE
     Dosage: 1.3 MG
     Route: 065
     Dates: start: 20210319
  79. HYDROMORPHONE HYDROCHLORIDE [Concomitant]
     Active Substance: HYDROMORPHONE HYDROCHLORIDE
     Dosage: 1.3 MG
     Route: 065
     Dates: start: 20210319
  80. MUNDISAL [Concomitant]
     Indication: Product used for unknown indication
     Dosage: UNK (0.5)
     Route: 065
     Dates: start: 20210310
  81. CALCIUM [Concomitant]
     Active Substance: CALCIUM
     Indication: Product used for unknown indication
     Dosage: UNK
     Route: 065
     Dates: start: 20210224
  82. CHOLECALCIFEROL [Concomitant]
     Active Substance: CHOLECALCIFEROL
     Indication: Prophylaxis
     Dosage: UNK, QD
     Route: 065
     Dates: start: 20210225
  83. CHOLECALCIFEROL [Concomitant]
     Active Substance: CHOLECALCIFEROL
     Dosage: QD
     Route: 065
     Dates: start: 20210225
  84. EPIRUBICIN [Concomitant]
     Active Substance: EPIRUBICIN
     Indication: Product used for unknown indication
     Dosage: UNK
     Route: 065
     Dates: start: 20210713, end: 20210914
  85. ASCORBIC ACID\CALCIUM PHOSPHATE\CHOLECALCIFEROL\CITRIC ACID MONOHYDRAT [Concomitant]
     Active Substance: ASCORBIC ACID\CALCIUM PHOSPHATE\CHOLECALCIFEROL\CITRIC ACID MONOHYDRATE
     Indication: Product used for unknown indication
     Dosage: UNK, QD
     Route: 065
     Dates: start: 20210224
  86. VINCRISTINE [Concomitant]
     Active Substance: VINCRISTINE
     Indication: Product used for unknown indication
     Dosage: UNK
     Route: 065
     Dates: start: 20210713, end: 20210914
  87. CYCLOPHOSPHAMIDE [Concomitant]
     Active Substance: CYCLOPHOSPHAMIDE
     Indication: Product used for unknown indication
     Dosage: UNK
     Route: 065
     Dates: start: 20210713, end: 20210915
  88. CARBOPLATIN [Concomitant]
     Active Substance: CARBOPLATIN
     Indication: Product used for unknown indication
     Dosage: UNK
     Route: 065
     Dates: start: 20211210
  89. ATEZOLIZUMAB [Concomitant]
     Active Substance: ATEZOLIZUMAB
     Indication: Small cell lung cancer extensive stage
     Dosage: 1200 MG
     Route: 065
  90. ETOPOSIDE [Concomitant]
     Active Substance: ETOPOSIDE
     Indication: Small cell lung cancer extensive stage
     Dosage: 212 MG
     Route: 042
     Dates: start: 20201211

REACTIONS (7)
  - Parotitis [Not Recovered/Not Resolved]
  - Lymphadenopathy [Not Recovered/Not Resolved]
  - Platelet count decreased [Recovered/Resolved]
  - Anaemia [Not Recovered/Not Resolved]
  - Fatigue [Not Recovered/Not Resolved]
  - Chest pain [Not Recovered/Not Resolved]
  - Pyrexia [Recovered/Resolved]

NARRATIVE: CASE EVENT DATE: 20201214
